FAERS Safety Report 6592774-9 (Version None)
Quarter: 2010Q1

REPORT INFORMATION
  Report Type: 
  Country: None (occurrence: None)
  Receive Date: 20100212
  Receipt Date: 20091210
  Transmission Date: 20100710
  Serious: Yes (Hospitalization)
  Sender: FDA-Public Use
  Company Number: 002628

PATIENT
  Sex: Female
  Weight: 53.6 kg

DRUGS (8)
  1. CIMZIA [Suspect]
     Indication: RHEUMATOID ARTHRITIS
     Dosage: (400 MG 1X/2 WEEKS SUBCUTANEOUS), (200 MG 1X/2 WEEKS SUBCUTANEOUS)
     Route: 058
     Dates: start: 20090813, end: 20090101
  2. CIMZIA [Suspect]
     Indication: RHEUMATOID ARTHRITIS
     Dosage: (400 MG 1X/2 WEEKS SUBCUTANEOUS), (200 MG 1X/2 WEEKS SUBCUTANEOUS)
     Route: 058
     Dates: start: 20090101, end: 20091116
  3. METHOTREXATE [Concomitant]
  4. PREDNISOLONE [Concomitant]
  5. LORTAB [Concomitant]
  6. GABAPENTIN [Concomitant]
  7. FLEXERIL [Concomitant]
  8. LISINOPRIL [Concomitant]

REACTIONS (5)
  - COLITIS [None]
  - HYPERTENSION [None]
  - MUSCLE SPASMS [None]
  - SCIATICA [None]
  - TREATMENT NONCOMPLIANCE [None]
